FAERS Safety Report 22346857 (Version 1)
Quarter: 2023Q2

REPORT INFORMATION
  Report Type: Spontaneous
  Country: US (occurrence: US)
  Receive Date: 20230520
  Receipt Date: 20230520
  Transmission Date: 20230721
  Serious: Yes (Other)
  Sender: FDA-Public Use
  Company Number: US-drreddys-SPO/USA/23/0165198

PATIENT
  Age: 17 Year
  Sex: Female

DRUGS (1)
  1. ZENATANE [Suspect]
     Active Substance: ISOTRETINOIN
     Indication: Product used for unknown indication
     Dosage: RMA ISSUE DATE: 10 JANUARY 2023 05:27:51 PM, 17 FEBRUARY 2023 02:23:07 PM, 29 MARCH 2023 02:35:35 PM

REACTIONS (2)
  - Depression [Unknown]
  - Mood altered [Unknown]
